FAERS Safety Report 10277219 (Version 1)
Quarter: 2014Q3

REPORT INFORMATION
  Report Type: Spontaneous
  Country: MX (occurrence: MX)
  Receive Date: 20140703
  Receipt Date: 20140703
  Transmission Date: 20150326
  Serious: Yes (Other)
  Sender: FDA-Public Use
  Company Number: MX-ABBVIE-14P-107-1254641-00

PATIENT
  Age: 59 Year
  Sex: Female

DRUGS (2)
  1. KLARICID OD [Suspect]
     Active Substance: CLARITHROMYCIN
     Indication: PHARYNGITIS
     Route: 048
     Dates: start: 20140621, end: 20140621
  2. TYLEX FLU [Concomitant]
     Indication: PRODUCT USED FOR UNKNOWN INDICATION
     Route: 048

REACTIONS (3)
  - Chest pain [Recovered/Resolved]
  - Hypoaesthesia [Recovered/Resolved]
  - Somnolence [Recovered/Resolved]

NARRATIVE: CASE EVENT DATE: 20140621
